FAERS Safety Report 21098135 (Version 2)
Quarter: 2022Q3

REPORT INFORMATION
  Report Type: Report from Study
  Country: ZA (occurrence: ZA)
  Receive Date: 20220719
  Receipt Date: 20220822
  Transmission Date: 20221026
  Serious: Yes (Hospitalization, Other)
  Sender: FDA-Public Use
  Company Number: ZA-TAKEDA-2022TUS033511

PATIENT
  Age: 40 Year
  Sex: Female

DRUGS (4)
  1. VEDOLIZUMAB [Suspect]
     Active Substance: VEDOLIZUMAB
     Indication: Crohn^s disease
     Dosage: 300 MILLIGRAM, Q8WEEKS
     Route: 042
     Dates: start: 20220117
  2. METHOTREXATE [Concomitant]
     Active Substance: METHOTREXATE
     Dosage: 15 MILLIGRAM, 1/WEEK
  3. FOLATE SODIUM [Concomitant]
     Active Substance: FOLATE SODIUM
     Dosage: 5 MILLIGRAM, QD
  4. CHLOROQUINE SULFATE [Concomitant]
     Active Substance: CHLOROQUINE SULFATE
     Dosage: 400 MILLIGRAM, QD

REACTIONS (5)
  - Encephalitis [Recovered/Resolved]
  - COVID-19 [Recovered/Resolved]
  - Herpes zoster [Recovered/Resolved]
  - Malaise [Unknown]
  - Inappropriate schedule of product administration [Unknown]
